FAERS Safety Report 8949065 (Version 3)
Quarter: 2013Q1

REPORT INFORMATION
  Report Type: Spontaneous
  Country: US (occurrence: US)
  Receive Date: 20121206
  Receipt Date: 20130212
  Transmission Date: 20140127
  Serious: Yes (Other)
  Sender: FDA-Public Use
  Company Number: US-PFIZER INC-2012303997

PATIENT
  Age: 70 Year
  Sex: Male
  Weight: 70 kg

DRUGS (11)
  1. BOSULIF [Suspect]
     Indication: CHRONIC MYELOID LEUKAEMIA
     Dosage: 500 MG, 1X/DAY
     Route: 048
     Dates: start: 20121105
  2. RANITIDINE [Concomitant]
     Dosage: 150 MG, DAILY
  3. GABAPENTIN [Concomitant]
     Dosage: 800 MG, 3X/DAY
  4. METOCLOPRAMIDE [Concomitant]
     Dosage: UNK
  5. LOPERAMIDE [Concomitant]
     Dosage: UNK
  6. TELMISARTAN [Concomitant]
     Dosage: 40 MG, DAILY
  7. CALCITRIOL / CALCIUM CITRATE [Concomitant]
     Dosage: UNK
  8. SENNA [Concomitant]
     Dosage: UNK, 2X/DAY
  9. RANEXA [Concomitant]
     Dosage: UNK
  10. MISOPROSTOL [Concomitant]
     Dosage: 200 MG, 4X/DAY
  11. DOCUSATE [Concomitant]
     Dosage: UNK, 2X/DAY

REACTIONS (3)
  - Colitis [Recovering/Resolving]
  - Arthralgia [Recovering/Resolving]
  - Myositis [Recovering/Resolving]
